FAERS Safety Report 8139997-5 (Version None)
Quarter: 2012Q1

REPORT INFORMATION
  Report Type: 
  Country: None (occurrence: None)
  Receive Date: 20120215
  Receipt Date: 20120208
  Transmission Date: 20120608
  Serious: Yes (Other)
  Sender: FDA-Public Use
  Company Number: US-MERCK-1202USA01569

PATIENT
  Age: 80 Year
  Sex: Female

DRUGS (6)
  1. FOSAMAX [Suspect]
     Route: 048
     Dates: start: 20070101, end: 20111101
  2. FOSAMAX [Suspect]
     Indication: OSTEOPOROSIS
     Route: 048
     Dates: start: 19960101, end: 20010201
  3. FOSAMAX [Suspect]
     Route: 048
     Dates: start: 20111101
  4. HYDROCHLOROTHIAZIDE AND TRIAMTERENE [Concomitant]
     Route: 065
  5. FOSAMAX [Suspect]
     Route: 048
     Dates: start: 20010201, end: 20040301
  6. PRAVASTATIN SODIUM [Concomitant]
     Route: 065

REACTIONS (3)
  - MALAISE [None]
  - BREAST CANCER [None]
  - GASTROENTERITIS NOROVIRUS [None]
